FAERS Safety Report 8612790-2 (Version None)
Quarter: 2012Q3

REPORT INFORMATION
  Report Type: 
  Country: None (occurrence: None)
  Receive Date: 20120822
  Receipt Date: 20120502
  Transmission Date: 20120928
  Serious: No
  Sender: FDA-Public Use
  Company Number: US-ASTRAZENECA-2007UW21290

PATIENT
  Age: 61 Year
  Sex: Female
  Weight: 63.5 kg

DRUGS (13)
  1. VITAMIN D SUPPLEMENTS [Concomitant]
  2. LAMICTAL [Concomitant]
  3. PULMICORT [Suspect]
     Route: 055
  4. SYMBICORT [Suspect]
     Route: 055
     Dates: start: 20120201, end: 20120228
  5. NEURONTIN [Concomitant]
  6. PLAVIX [Concomitant]
  7. COMBIVENT [Concomitant]
  8. SEROQUEL [Concomitant]
  9. FORTEO [Concomitant]
  10. CALCIUM [Concomitant]
  11. CRESTOR [Suspect]
     Indication: HYPERCHOLESTEROLAEMIA
     Route: 048
     Dates: start: 20070820
  12. FISH OIL [Concomitant]
  13. LITHIUM SULFATE [Concomitant]

REACTIONS (7)
  - BACK PAIN [None]
  - SALIVARY HYPERSECRETION [None]
  - NAUSEA [None]
  - VOMITING [None]
  - FATIGUE [None]
  - DYSPEPSIA [None]
  - FEELING ABNORMAL [None]
